FAERS Safety Report 4782767-6 (Version None)
Quarter: 2005Q3

REPORT INFORMATION
  Report Type: 
  Country: None (occurrence: None)
  Receive Date: 20050929
  Receipt Date: 20050826
  Transmission Date: 20060218
  Serious: Yes (Death, Other)
  Sender: FDA-Public Use
  Company Number: PHNU2005DE02973

PATIENT
  Age: 52 Year
  Sex: Male
  Weight: 75 kg

DRUGS (2)
  1. AVELOX [Suspect]
     Indication: INFECTION
     Dosage: 400 MG, QD
     Route: 042
     Dates: start: 20050819, end: 20050822
  2. SANDOSTATIN [Suspect]
     Indication: FISTULA
     Dosage: 0.1 MG, TID
     Route: 065
     Dates: start: 20050817, end: 20050825

REACTIONS (8)
  - ACTIVATED PARTIAL THROMBOPLASTIN TIME PROLONGED [None]
  - ALANINE AMINOTRANSFERASE INCREASED [None]
  - BRAIN OEDEMA [None]
  - C-REACTIVE PROTEIN INCREASED [None]
  - CARDIAC FAILURE [None]
  - GAMMA-GLUTAMYLTRANSFERASE INCREASED [None]
  - HEPATIC ENCEPHALOPATHY [None]
  - HYPERAMMONAEMIA [None]
